FAERS Safety Report 23034663 (Version 2)
Quarter: 2023Q4

REPORT INFORMATION
  Report Type: Spontaneous
  Country: ZA (occurrence: ZA)
  Receive Date: 20231005
  Receipt Date: 20231018
  Transmission Date: 20240109
  Serious: Yes (Hospitalization, Other)
  Sender: FDA-Public Use
  Company Number: ZA-TEVA-2023-ZA-2931526

PATIENT
  Age: 40 Year
  Sex: Female

DRUGS (2)
  1. AZATHIOPRINE [Suspect]
     Active Substance: AZATHIOPRINE
     Indication: Crohn^s disease
     Route: 065
     Dates: start: 2017
  2. METHOTREXATE [Suspect]
     Active Substance: METHOTREXATE
     Indication: Crohn^s disease
     Route: 058

REACTIONS (4)
  - Squamous cell carcinoma of skin [Recovering/Resolving]
  - Basal cell carcinoma [Recovering/Resolving]
  - Skin squamous cell carcinoma recurrent [Recovering/Resolving]
  - Basal cell carcinoma [Recovering/Resolving]

NARRATIVE: CASE EVENT DATE: 20201101
